FAERS Safety Report 9916213 (Version 1)
Quarter: 2014Q1

REPORT INFORMATION
  Report Type: Spontaneous
  Country: US (occurrence: US)
  Receive Date: 20140221
  Receipt Date: 20140221
  Transmission Date: 20141002
  Serious: Yes (Hospitalization)
  Sender: FDA-Public Use
  Company Number: US-JNJFOC-20140211632

PATIENT
  Sex: Male
  Weight: 90.72 kg

DRUGS (4)
  1. REMICADE [Suspect]
     Indication: REITER^S SYNDROME
     Route: 042
  2. INDOCIN (INDOMETACIN) [Concomitant]
     Indication: REITER^S SYNDROME
     Route: 065
  3. PREDNISONE [Concomitant]
     Indication: REITER^S SYNDROME
     Route: 065
  4. TOPROL [Concomitant]
     Indication: HYPERTENSION
     Route: 065

REACTIONS (7)
  - Myocardial infarction [Unknown]
  - Cardiomyopathy [Unknown]
  - Nervous system disorder [Unknown]
  - Reiter^s syndrome [Unknown]
  - Staphylococcal infection [Unknown]
  - Pseudomonas infection [Unknown]
  - Off label use [Recovered/Resolved]
